FAERS Safety Report 7339655-0 (Version None)
Quarter: 2011Q1

REPORT INFORMATION
  Report Type: 
  Country: None (occurrence: None)
  Receive Date: 20110308
  Receipt Date: 20110307
  Transmission Date: 20110831
  Serious: Yes (Other)
  Sender: FDA-Public Use
  Company Number: CL-ABBOTT-10P-034-0643506-00

PATIENT
  Sex: Female
  Weight: 88 kg

DRUGS (2)
  1. HUMIRA [Suspect]
     Indication: RHEUMATOID ARTHRITIS
     Route: 058
     Dates: start: 20080401, end: 20100415
  2. MESALAZINE [Concomitant]
     Indication: COLITIS ULCERATIVE
     Route: 048
     Dates: start: 20080101, end: 20100401

REACTIONS (2)
  - CHRONIC MYELOID LEUKAEMIA [None]
  - ALOPECIA [None]
